FAERS Safety Report 10040116 (Version 2)
Quarter: 2014Q1

REPORT INFORMATION
  Report Type: Spontaneous
  Country: SE (occurrence: SE)
  Receive Date: 20140326
  Receipt Date: 20140326
  Transmission Date: 20141002
  Serious: Yes (Other)
  Sender: FDA-Public Use
  Company Number: SE-009507513-1403SWE007359

PATIENT
  Age: 70 Year
  Sex: Female

DRUGS (14)
  1. OVESTERIN [Suspect]
     Indication: PROPHYLAXIS
     Dosage: 0.5 MG, TWICE PER WEEK,VAGINAL TABLET FORMULATIION
     Dates: start: 20140213, end: 20140304
  2. OVESTERIN [Suspect]
     Indication: URINARY TRACT INFECTION
  3. TACROLIMUS [Concomitant]
  4. MYCOPHENOLATE MOFETIL (MYCOFENOLATMOFETIL) [Concomitant]
  5. PREDNISOLONE [Concomitant]
  6. OMEPRAZOLE [Concomitant]
  7. LOSARSTAD [Concomitant]
  8. METOPROLOL [Concomitant]
  9. SOLVEZINK [Concomitant]
  10. KALEORID [Concomitant]
  11. DIMOR [Concomitant]
  12. LESCOL [Concomitant]
  13. ETALPHA [Concomitant]
  14. CALCIUM SANDOZ (CALCIUM CARBONATE (+) CALCIUM LACTATE GLUCONATE) [Concomitant]

REACTIONS (6)
  - Erythema [Recovering/Resolving]
  - Rash [Recovering/Resolving]
  - Rash macular [Unknown]
  - Acne [Unknown]
  - Sticky skin [Unknown]
  - Hypersensitivity [Unknown]
